FAERS Safety Report 15129027 (Version 2)
Quarter: 2018Q3

REPORT INFORMATION
  Report Type: Spontaneous
  Country: US (occurrence: US)
  Receive Date: 20180711
  Receipt Date: 20180912
  Transmission Date: 20181010
  Serious: Yes (Hospitalization, Disabling, Other)
  Sender: FDA-Public Use
  Company Number: US-BRISTOL-MYERS SQUIBB COMPANY-BMS-2018-062941

PATIENT
  Sex: Female
  Weight: 70.3 kg

DRUGS (1)
  1. OPDIVO [Suspect]
     Active Substance: NIVOLUMAB
     Indication: LUNG NEOPLASM MALIGNANT
     Dosage: UNK UNK, Q2WK
     Route: 042

REACTIONS (12)
  - Memory impairment [Unknown]
  - Fall [Unknown]
  - Retinal detachment [Unknown]
  - Drug ineffective [Unknown]
  - Gait inability [Unknown]
  - Scratch [Unknown]
  - Coordination abnormal [Unknown]
  - Contusion [Unknown]
  - Balance disorder [Unknown]
  - Pruritus [Unknown]
  - Heart rate decreased [Unknown]
  - Skin disorder [Unknown]
